FAERS Safety Report 8981859 (Version 1)
Quarter: 2012Q4

REPORT INFORMATION
  Report Type: 
  Country: US (occurrence: US)
  Receive Date: 20121212
  Receipt Date: 20121212
  Transmission Date: 20130627
  Serious: Yes (Death, Hospitalization)
  Sender: FDA-Public Use
  Company Number: US-ASTELLAS-1032336

PATIENT
  Sex: Female

DRUGS (1)
  1. TARCEVA [Suspect]
     Indication: PRODUCT USED FOR UNKNOWN INDICATION

REACTIONS (7)
  - Death [Fatal]
  - Pneumothorax [Unknown]
  - Lung neoplasm malignant [Unknown]
  - Oedema peripheral [Unknown]
  - Tachycardia [Unknown]
  - General physical health deterioration [Unknown]
  - Pleural infection [Unknown]
